FAERS Safety Report 22268673 (Version 1)
Quarter: 2023Q2

REPORT INFORMATION
  Report Type: Spontaneous
  Country: CN (occurrence: CN)
  Receive Date: 20230501
  Receipt Date: 20230501
  Transmission Date: 20230721
  Serious: Yes (Death, Life-Threatening, Hospitalization, Other)
  Sender: FDA-Public Use
  Company Number: CN-MLMSERVICE-20230411-4211899-1

PATIENT
  Age: 77 Year
  Sex: Male

DRUGS (7)
  1. METHOTREXATE [Suspect]
     Active Substance: METHOTREXATE
     Indication: Rheumatoid arthritis
     Route: 048
     Dates: start: 20200909, end: 20200913
  2. HERBALS [Concomitant]
     Active Substance: HERBALS
     Indication: Rheumatoid arthritis
     Route: 048
     Dates: start: 20200909, end: 20200913
  3. METHYLPREDNISOLONE [Concomitant]
     Active Substance: METHYLPREDNISOLONE
     Indication: Rheumatoid arthritis
     Route: 048
     Dates: start: 20200909, end: 20200913
  4. AMLODIPINE BESYLATE [Concomitant]
     Active Substance: AMLODIPINE BESYLATE
     Indication: Hypertension
     Route: 048
  5. ACARBOSE [Concomitant]
     Active Substance: ACARBOSE
     Indication: Diabetes mellitus
     Route: 048
  6. INSULIN NOS [Concomitant]
     Active Substance: INSULIN NOS
     Indication: Diabetes mellitus
     Route: 048
  7. METFORMIN [Concomitant]
     Active Substance: METFORMIN HYDROCHLORIDE
     Indication: Diabetes mellitus
     Route: 048

REACTIONS (11)
  - Pneumonia [Fatal]
  - Respiratory failure [Fatal]
  - Toxicity to various agents [Fatal]
  - Renal failure [Fatal]
  - Liver injury [Fatal]
  - Mouth ulceration [Fatal]
  - Myelosuppression [Fatal]
  - Inappropriate schedule of product administration [Fatal]
  - Accidental overdose [Fatal]
  - Multiple organ dysfunction syndrome [Fatal]
  - Rash [Fatal]

NARRATIVE: CASE EVENT DATE: 20200901
